FAERS Safety Report 15007491 (Version 1)
Quarter: 2018Q2

REPORT INFORMATION
  Report Type: Spontaneous
  Country: GB (occurrence: GB)
  Receive Date: 20180613
  Receipt Date: 20180613
  Transmission Date: 20180711
  Serious: Yes (Other)
  Sender: FDA-Public Use
  Company Number: GB-TEVA-2018-GB-905341

PATIENT
  Age: 57 Year
  Sex: Female
  Weight: 66.22 kg

DRUGS (1)
  1. OMEPRAZOLE DELAYED RELEASE CAPSULES,10 MG, 20 MG AND 30 MG [Suspect]
     Active Substance: OMEPRAZOLE
     Indication: DYSPEPSIA
     Route: 048
     Dates: start: 20180301, end: 20180411

REACTIONS (7)
  - Vulvovaginal inflammation [Recovering/Resolving]
  - pH urine abnormal [Unknown]
  - Pollakiuria [Unknown]
  - Dermatitis [Unknown]
  - Vulvovaginal burning sensation [Recovering/Resolving]
  - Urinary tract infection [Unknown]
  - Malaise [Unknown]

NARRATIVE: CASE EVENT DATE: 20180411
